FAERS Safety Report 5194508-1 (Version None)
Quarter: 2006Q4

REPORT INFORMATION
  Report Type: 
  Country: None (occurrence: None)
  Receive Date: 20061222
  Receipt Date: 20061212
  Transmission Date: 20070319
  Serious: Yes (Hospitalization, Other)
  Sender: FDA-Public Use
  Company Number: HQ4741022OCT2002

PATIENT
  Age: 43 Year
  Sex: Female

DRUGS (12)
  1. EFFEXOR [Suspect]
     Indication: MAJOR DEPRESSION
     Dosage: 225-300 + 375 MG PER DAYORAL - SEE IMAGE
     Route: 048
     Dates: start: 19980101, end: 20000101
  2. EFFEXOR [Suspect]
     Indication: MAJOR DEPRESSION
     Dosage: 225-300 + 375 MG PER DAYORAL - SEE IMAGE
     Route: 048
     Dates: start: 20011219, end: 20020130
  3. EFFEXOR [Suspect]
     Indication: MAJOR DEPRESSION
     Dosage: 225-300 + 375 MG PER DAYORAL - SEE IMAGE
     Route: 048
     Dates: start: 20000101, end: 20020130
  4. EFFEXOR [Suspect]
     Indication: MAJOR DEPRESSION
     Dosage: 225-300 + 375 MG PER DAYORAL - SEE IMAGE
     Route: 048
     Dates: start: 20020131, end: 20020220
  5. EFFEXOR [Suspect]
     Indication: MAJOR DEPRESSION
     Dosage: 225 + 75 + 150 MG 1X PER 1 DAY ORAL
     Dates: start: 20020221, end: 20020227
  6. EFFEXOR [Suspect]
     Indication: MAJOR DEPRESSION
     Dosage: 225 + 75 + 150 MG 1X PER 1 DAY ORAL
     Dates: start: 20020228, end: 20020306
  7. EFFEXOR [Suspect]
     Indication: MAJOR DEPRESSION
     Dosage: 225 + 75 + 150 MG 1X PER 1 DAY ORAL
     Dates: start: 20020307, end: 20020313
  8. FLUANXOL ^DUNDBECK^ (FLUPENTIXOL DIHYDROCHLORIDE, ) [Suspect]
     Indication: MUSCLE RIGIDITY
     Dosage: 4 MG 1X PER 1 DAY
     Dates: start: 20011220, end: 20020115
  9. FLUANXOL ^DUNDBECK^ (FLUPENTIXOL DIHYDROCHLORIDE, ) [Suspect]
     Indication: MUSCLE RIGIDITY
     Dosage: 4 MG 1X PER 1 DAY
     Dates: start: 20020116
  10. CORGARD [Concomitant]
  11. FERRUM (FERROUS FUMARATE) [Concomitant]
  12. FRAZINE (PROMAZINE HYDROCHLORIDE) [Concomitant]

REACTIONS (11)
  - AGITATION [None]
  - ALOPECIA [None]
  - ANXIETY [None]
  - CONDITION AGGRAVATED [None]
  - DEPRESSION [None]
  - DRUG LEVEL ABOVE THERAPEUTIC [None]
  - MADAROSIS [None]
  - MUSCLE TIGHTNESS [None]
  - SUICIDE ATTEMPT [None]
  - TREMOR [None]
  - WEIGHT INCREASED [None]
